FAERS Safety Report 7637423-3 (Version None)
Quarter: 2011Q3

REPORT INFORMATION
  Report Type: 
  Country: None (occurrence: None)
  Receive Date: 20110726
  Receipt Date: 20110719
  Transmission Date: 20111222
  Serious: Yes (Other)
  Sender: FDA-Public Use
  Company Number: US-PFIZER INC-2010131524

PATIENT
  Sex: Female
  Weight: 95.7 kg

DRUGS (8)
  1. ASPIRIN [Concomitant]
  2. HUMALOG [Concomitant]
     Indication: DIABETES MELLITUS
     Dosage: 5 IU, AFTER MEALS
  3. LIPITOR [Concomitant]
  4. DEPO-PROVERA [Suspect]
     Indication: CONTRACEPTION
     Dosage: 150 MG, EVERY 11 WEEKS
     Route: 030
     Dates: start: 20100331, end: 20100901
  5. AMARYL [Concomitant]
  6. LANTUS [Concomitant]
     Indication: DIABETES MELLITUS
     Dosage: 35 UNK, 1X/DAY
  7. METFORMIN [Concomitant]
     Indication: DIABETES MELLITUS
     Dosage: 1000 MG, 2X/DAY
  8. MULTI-VITAMINS [Concomitant]
     Dosage: UNK

REACTIONS (3)
  - UNINTENDED PREGNANCY [None]
  - INAPPROPRIATE SCHEDULE OF DRUG ADMINISTRATION [None]
  - AMENORRHOEA [None]
